FAERS Safety Report 5500302-1 (Version None)
Quarter: 2007Q4

REPORT INFORMATION
  Report Type: 
  Country: None (occurrence: None)
  Receive Date: 20071025
  Receipt Date: 20070917
  Transmission Date: 20080405
  Serious: Yes (Hospitalization)
  Sender: FDA-Public Use
  Company Number: 6038087

PATIENT
  Age: 75 Year
  Sex: Female

DRUGS (10)
  1. BISOPROLOL FUMARATE [Suspect]
     Indication: DRUG USE FOR UNKNOWN INDICATION
     Dosage: 0,500 DOSAGE FORMS (0,5 DOSAGE FORMS, 1 IN 1 D) ORAL
     Route: 048
     Dates: start: 20070601, end: 20070601
  2. BISOPROLOL FUMARATE [Suspect]
     Indication: DRUG USE FOR UNKNOWN INDICATION
     Dosage: 0,500 DOSAGE FORMS (0,5 DOSAGEF ORMS, 1 IN 1 D) ORAL
     Route: 048
     Dates: end: 20070601
  3. ZOLPIDEM [Suspect]
     Indication: DRUG USE FOR UNKNOWN INDICATION
     Dosage: 10,000 MG (10 MG, 1 IN 1 D) ORAL
     Route: 048
  4. NICARDIPINE HYDROCHLORIDE [Suspect]
     Indication: DRUG USE FOR UNKNOWN INDICATION
     Dosage: 1,00 DOSAGE FORMS (1 DOSAGE FORMS, 1 IN 1 D) ORAL
     Route: 048
     Dates: end: 20070601
  5. CO-RENITEC (TABLET) (HYDROCHLOROTHIAZIDE, ENALAPRIL MALEATE) [Concomitant]
  6. KARDEGIC (POWDER FOR ORAL SOLUTION) (ACETYLSALICYLATE LYSINE) [Concomitant]
  7. PRAVASTATIN SODIUM [Concomitant]
  8. CITALOPRAM HYDROBROMIDE [Concomitant]
  9. CACIT D3 (TABLET) (COLECALCIFEROL, CALCIUM CARBONATE) [Concomitant]
  10. ZOCOR [Concomitant]

REACTIONS (15)
  - AMNESTIC DISORDER [None]
  - BRADYCARDIA [None]
  - CEREBRAL ATROPHY [None]
  - CREATININE RENAL CLEARANCE DECREASED [None]
  - DIZZINESS [None]
  - FALL [None]
  - LOSS OF CONSCIOUSNESS [None]
  - MALAISE [None]
  - MEDICATION ERROR [None]
  - ORTHOSTATIC HYPOTENSION [None]
  - SYNCOPE [None]
  - URGE INCONTINENCE [None]
  - URINARY INCONTINENCE [None]
  - URINARY TRACT DISORDER [None]
  - VERTIGO [None]
